FAERS Safety Report 23623923 (Version 3)
Quarter: 2024Q4

REPORT INFORMATION
  Report Type: Spontaneous
  Country: FR (occurrence: FR)
  Receive Date: 20240312
  Receipt Date: 20241001
  Transmission Date: 20250114
  Serious: Yes (Other)
  Sender: MYLAN
  Company Number: None

PATIENT
  Age: 62 Year
  Sex: Male

DRUGS (4)
  1. IMATINIB [Suspect]
     Active Substance: IMATINIB
     Indication: Chronic lymphocytic leukaemia
     Dosage: 1 DOSAGE FORM, QD
     Route: 048
     Dates: start: 20191210, end: 20240515
  2. COMIRNATY (TOZINAMERAN) [Suspect]
     Active Substance: TOZINAMERAN
     Indication: COVID-19 immunisation
     Dosage: 1 DOSAGE FORM,QD,(D1,LEFT DELTOID), 30 MICROGRAM/DOSES
     Route: 030
     Dates: start: 20210401, end: 20210401
  3. COMIRNATY (TOZINAMERAN) [Suspect]
     Active Substance: TOZINAMERAN
     Dosage: 1 DOSAGE FORM, QD,(D2, RIGHT DELTOID)
     Route: 030
     Dates: start: 20210429, end: 20210429
  4. COMIRNATY (TOZINAMERAN) [Suspect]
     Active Substance: TOZINAMERAN
     Dosage: 1 DOSAGE FORM,1 TOTAL
     Route: 030
     Dates: end: 20211116

REACTIONS (2)
  - Scleritis [Not Recovered/Not Resolved]
  - Uveitis [Recovered/Resolved]

NARRATIVE: CASE EVENT DATE: 20210517
